FAERS Safety Report 11196866 (Version 3)
Quarter: 2015Q3

REPORT INFORMATION
  Report Type: Spontaneous
  Country: US (occurrence: US)
  Receive Date: 20150617
  Receipt Date: 20150827
  Transmission Date: 20151125
  Serious: No
  Sender: FDA-Public Use
  Company Number: US-ASTRAZENECA-2015SE35655

PATIENT
  Age: 30993 Day
  Sex: Female
  Weight: 63.5 kg

DRUGS (11)
  1. SYNTHROID [Concomitant]
     Active Substance: LEVOTHYROXINE SODIUM
     Indication: THYROID DISORDER
  2. MOVANTIK [Suspect]
     Active Substance: NALOXEGOL OXALATE
     Indication: CONSTIPATION
     Dosage: CUT THE 25MG TABLET IN HALF
     Route: 048
  3. FENTANYL. [Concomitant]
     Active Substance: FENTANYL
     Indication: PAIN
  4. VITAMIN D [Concomitant]
     Active Substance: CHOLECALCIFEROL
  5. USNPECIFIED OPIATES [Concomitant]
  6. SUBSYSS [Concomitant]
     Indication: PAIN
  7. ALL PURPOSE VITAMIN [Concomitant]
  8. MOVANTIK [Suspect]
     Active Substance: NALOXEGOL OXALATE
     Indication: CONSTIPATION
     Route: 048
     Dates: start: 20150410
  9. MOVANTIK [Suspect]
     Active Substance: NALOXEGOL OXALATE
     Indication: CONSTIPATION
     Route: 048
  10. CALCIUM [Concomitant]
     Active Substance: CALCIUM
  11. CHOLESTEROL MEDICATION [Concomitant]
     Active Substance: UNSPECIFIED INGREDIENT
     Indication: BLOOD CHOLESTEROL INCREASED

REACTIONS (8)
  - Malaise [Not Recovered/Not Resolved]
  - Drug intolerance [Recovered/Resolved]
  - Frequent bowel movements [Recovered/Resolved]
  - Neuralgia [Unknown]
  - Off label use [Unknown]
  - Abdominal pain [Not Recovered/Not Resolved]
  - Bedridden [Unknown]
  - Nausea [Not Recovered/Not Resolved]

NARRATIVE: CASE EVENT DATE: 20150410
